FAERS Safety Report 6672327-4 (Version None)
Quarter: 2010Q2

REPORT INFORMATION
  Report Type: 
  Country: None (occurrence: None)
  Receive Date: 20100408
  Receipt Date: 20100118
  Transmission Date: 20101027
  Serious: No
  Sender: FDA-Public Use
  Company Number: A0750285A

PATIENT
  Age: 56 Year
  Sex: Female

DRUGS (8)
  1. REQUIP XL [Suspect]
     Indication: PARKINSON'S DISEASE
     Dosage: 1MG THREE TIMES PER DAY
     Route: 048
     Dates: start: 20080911
  2. ROPINIROLE [Suspect]
     Indication: PARKINSON'S DISEASE
     Route: 048
  3. SINEMET [Concomitant]
  4. AZILECT [Concomitant]
  5. HYDROCHLOROTHIAZIDE [Concomitant]
  6. NORVASC [Concomitant]
  7. ATENOLOL [Concomitant]
  8. GINGER [Concomitant]

REACTIONS (4)
  - BRONCHITIS [None]
  - DIZZINESS [None]
  - NAUSEA [None]
  - SOMNOLENCE [None]
